FAERS Safety Report 15932426 (Version 1)
Quarter: 2019Q1

REPORT INFORMATION
  Report Type: Spontaneous
  Country: IT (occurrence: IT)
  Receive Date: 20190207
  Receipt Date: 20190207
  Transmission Date: 20190417
  Serious: Yes (Other)
  Sender: FDA-Public Use
  Company Number: IT-ASTRAZENECA-2019SE18107

PATIENT
  Age: 84 Year
  Sex: Female

DRUGS (3)
  1. LEXOTAN [Concomitant]
     Active Substance: BROMAZEPAM
     Dosage: 50 DROPS
  2. ZARELIS [Concomitant]
     Active Substance: VENLAFAXINE HYDROCHLORIDE
     Dosage: 300.0MG UNKNOWN
  3. SEROQUEL [Suspect]
     Active Substance: QUETIAPINE FUMARATE
     Indication: DEPRESSION
     Dosage: 75.0MG ONCE/SINGLE ADMINISTRATION
     Route: 048
     Dates: start: 20180924, end: 20180924

REACTIONS (4)
  - Sopor [Unknown]
  - Drug abuse [Unknown]
  - Loss of consciousness [Unknown]
  - Toxicity to various agents [Unknown]

NARRATIVE: CASE EVENT DATE: 20180924
